FAERS Safety Report 4399087-4 (Version None)
Quarter: 2004Q2

REPORT INFORMATION
  Report Type: 
  Country: None (occurrence: None)
  Receive Date: 20040621
  Receipt Date: 20031125
  Transmission Date: 20050107
  Serious: Yes (Death)
  Sender: FDA-Public Use
  Company Number: 2012798

PATIENT
  Age: 28 Year
  Sex: Male
  Weight: 81.2 kg

DRUGS (7)
  1. OXYCONTIN [Suspect]
  2. HYDROCODONE BITARTRATE [Suspect]
  3. DIHYDROCODEINE/CAFFEINE/ACETAMINOPHEN (SIMILAR TO ANDA 59175) DIHYDROC [Suspect]
  4. CAFFEINE (CAFFEINE) [Suspect]
  5. NICOTINE [Suspect]
  6. ALPRAZOLAM [Suspect]
  7. ACETAMINOPHEN [Suspect]

REACTIONS (1)
  - MULTIPLE DRUG OVERDOSE ACCIDENTAL [None]
